FAERS Safety Report 5431728-2 (Version None)
Quarter: 2007Q3

REPORT INFORMATION
  Report Type: 
  Country: None (occurrence: None)
  Receive Date: 20070830
  Receipt Date: 20070829
  Transmission Date: 20080115
  Serious: Yes (Death)
  Sender: FDA-Public Use
  Company Number: US-BAXTER-2007BH007353

PATIENT
  Age: 33 Year
  Sex: Female
  Weight: 146 kg

DRUGS (3)
  1. MORPHINE SULFATE [Suspect]
     Indication: DRUG ABUSER
     Dosage: DOSE UNIT:UNKNOWN
     Route: 042
     Dates: start: 20070602, end: 20070602
  2. PROMETHAZINE HCL [Suspect]
     Indication: DRUG ABUSER
     Dosage: DOSE UNIT:UNKNOWN
     Route: 065
  3. HYDROMORPHONE HCL [Suspect]
     Indication: DRUG ABUSER
     Dosage: DOSE UNIT:UNKNOWN
     Route: 065

REACTIONS (1)
  - INTENTIONAL OVERDOSE [None]
